FAERS Safety Report 8936721 (Version 2)
Quarter: 2013Q1

REPORT INFORMATION
  Report Type: Spontaneous
  Country: JP (occurrence: JP)
  Receive Date: 20121130
  Receipt Date: 20130103
  Transmission Date: 20140127
  Serious: Yes (Other)
  Sender: FDA-Public Use
  Company Number: JP-ASTRAZENECA-2012SE89685

PATIENT
  Age: 70 Year
  Sex: Male

DRUGS (7)
  1. SEROQUEL [Suspect]
     Indication: DELIRIUM
     Route: 048
  2. SEROQUEL [Suspect]
     Indication: DELIRIUM
     Route: 048
  3. OXYCODONE [Concomitant]
     Indication: PAIN
     Route: 048
  4. OXYCODONE [Concomitant]
     Indication: PAIN
     Route: 048
  5. OXYCODONE [Concomitant]
     Indication: PAIN
     Route: 048
  6. OXYCODONE [Concomitant]
     Indication: PAIN
     Route: 048
  7. TS-1 [Concomitant]
     Route: 048

REACTIONS (2)
  - Blood glucose increased [Unknown]
  - Off label use [Unknown]
